FAERS Safety Report 8549424-1 (Version None)
Quarter: 2012Q3

REPORT INFORMATION
  Report Type: 
  Country: None (occurrence: None)
  Receive Date: 20120730
  Receipt Date: 20120727
  Transmission Date: 20120928
  Serious: Yes (Other)
  Sender: FDA-Public Use
  Company Number: US-PFIZER INC-2012182941

PATIENT
  Age: 15 Year
  Sex: Male
  Weight: 145 kg

DRUGS (11)
  1. CELEBREX [Concomitant]
     Dosage: 200 MG, DAILY
     Route: 048
  2. LEXAPRO [Concomitant]
     Dosage: 20 MG, DAILY
  3. TRAZODONE [Concomitant]
     Dosage: 200 MG, DAILY
  4. CARAFATE [Concomitant]
     Dosage: 1 MG, 4X/DAY
     Route: 048
  5. NEURONTIN [Suspect]
     Indication: NEURALGIA
     Dosage: 300 MG, DAILY
     Dates: start: 20120301, end: 20120723
  6. ULTRAM [Concomitant]
     Dosage: 50 MG, DAILY
     Route: 048
  7. ZOLOFT [Suspect]
     Indication: EMOTIONAL DISORDER
     Dosage: UNK
     Dates: start: 20080901, end: 20081201
  8. MELATONIN [Concomitant]
     Dosage: 3 MG, DAILY
  9. NEXIUM [Concomitant]
     Dosage: UNK,DAILY
  10. VITAMIN D [Concomitant]
     Dosage: 200 MG, DAILY
  11. XANAX [Concomitant]
     Dosage: UNK
     Route: 048

REACTIONS (1)
  - INTENTIONAL SELF-INJURY [None]
